FAERS Safety Report 4991540-5 (Version None)
Quarter: 2006Q2

REPORT INFORMATION
  Report Type: 
  Country: None (occurrence: None)
  Receive Date: 20060502
  Receipt Date: 20060427
  Transmission Date: 20061013
  Serious: Yes (Other)
  Sender: FDA-Public Use
  Company Number: 2005S1000263

PATIENT
  Age: 49 Year
  Sex: Female
  Weight: 60 kg

DRUGS (17)
  1. CUBICIN [Suspect]
     Indication: ENDOCARDITIS STAPHYLOCOCCAL
     Dosage: 360 MG; Q24H; IV
     Route: 042
     Dates: start: 20051122, end: 20051227
  2. AZITHROMYCIN [Concomitant]
  3. DAPSONE [Concomitant]
  4. VANCOMYCIN [Concomitant]
  5. DARBEPOETIN ALFA [Concomitant]
  6. METRONIDAZOLE [Concomitant]
  7. KALETRA [Concomitant]
  8. DILANTIN [Concomitant]
  9. INSULIN [Concomitant]
  10. TENOFOVIR [Concomitant]
  11. IRON [Concomitant]
  12. PANTOPRAZOLE [Concomitant]
  13. FAMVIR [Concomitant]
  14. DEPAKOTE [Concomitant]
  15. LOVENOX [Concomitant]
  16. FLUCONAZOLE [Concomitant]
  17. K-DUR 10 [Concomitant]

REACTIONS (4)
  - DIABETES INSIPIDUS [None]
  - DRUG INEFFECTIVE [None]
  - LETHARGY [None]
  - URINE OUTPUT INCREASED [None]
